FAERS Safety Report 5605198-5 (Version None)
Quarter: 2008Q1

REPORT INFORMATION
  Report Type: 
  Country: None (occurrence: None)
  Receive Date: 20080124
  Receipt Date: 20080118
  Transmission Date: 20080703
  Serious: Yes (Life-Threatening, Hospitalization)
  Sender: FDA-Public Use
  Company Number: 2008SP001559

PATIENT
  Age: 58 Year
  Sex: Male
  Weight: 114.3 kg

DRUGS (13)
  1. PEG-INTRON [Suspect]
     Indication: HEPATITIS C
     Dosage: 80 MCG; QW; SC
     Route: 058
     Dates: start: 20071010
  2. REBETOL [Suspect]
     Indication: HEPATITIS C
     Dosage: 800 MG; BID; PO
     Route: 048
     Dates: start: 20071010
  3. PROCRIT [Suspect]
     Indication: ANAEMIA
     Dosage: 60000 QW; SC
     Route: 058
     Dates: start: 20071016
  4. RIFAXAMIN [Concomitant]
  5. PROPRANOL [Concomitant]
  6. NEUPOGEN [Concomitant]
  7. SPIRONOLACTONE [Concomitant]
  8. FOLIC ACID [Concomitant]
  9. NEOMYCIN [Concomitant]
  10. CIPROFLOXACIN [Concomitant]
  11. FUROSEMIDE [Concomitant]
  12. LACTULOSE [Concomitant]
  13. PROTONIX [Concomitant]

REACTIONS (8)
  - ANAEMIA [None]
  - ANAESTHETIC COMPLICATION [None]
  - ATRIOVENTRICULAR BLOCK FIRST DEGREE [None]
  - BRADYCARDIA [None]
  - CARDIAC ARREST [None]
  - ELECTROCARDIOGRAM QT PROLONGED [None]
  - LEFT VENTRICULAR END-DIASTOLIC PRESSURE INCREASED [None]
  - VENTRICULAR FIBRILLATION [None]
